FAERS Safety Report 8836385 (Version 1)
Quarter: 2012Q4

REPORT INFORMATION
  Report Type: 
  Country: US (occurrence: US)
  Receive Date: 20121011
  Receipt Date: 20121011
  Transmission Date: 20130627
  Serious: No
  Sender: FDA-Public Use
  Company Number: US-NOVEN-12US005083

PATIENT
  Age: 55 Year
  Sex: Male

DRUGS (2)
  1. FENTANYL [Suspect]
     Indication: PAIN
     Dosage: 75 ug/hr, UNK
     Route: 062
     Dates: start: 2012
  2. TESTOSTERONE [Concomitant]
     Indication: HORMONE REPLACEMENT THERAPY

REACTIONS (3)
  - Hot flush [Recovered/Resolved]
  - Body temperature increased [Recovered/Resolved]
  - Drug level fluctuating [Recovered/Resolved]
